FAERS Safety Report 9688195 (Version 3)
Quarter: 2013Q4

REPORT INFORMATION
  Report Type: Report from Study
  Country: US (occurrence: US)
  Receive Date: 20131114
  Receipt Date: 20131224
  Transmission Date: 20140711
  Serious: Yes (Hospitalization)
  Sender: FDA-Public Use
  Company Number: US-BRISTOL-MYERS SQUIBB COMPANY-19794239

PATIENT
  Age: 57 Year
  Sex: Female
  Weight: 63 kg

DRUGS (2)
  1. DASATINIB [Suspect]
     Indication: NEOPLASM
     Dosage: LAST ADMINISTERED:09/20/2013
     Route: 048
     Dates: start: 20130809
  2. IPILIMUMAB [Suspect]
     Indication: NEOPLASM
     Dosage: 700MG, LAST ADMINISTERED:10/18/2013
     Route: 042
     Dates: start: 20130809

REACTIONS (7)
  - Dyspnoea [Recovering/Resolving]
  - Cough [Recovering/Resolving]
  - Muscular weakness [Recovering/Resolving]
  - Hypophosphataemia [Recovering/Resolving]
  - Chills [Recovering/Resolving]
  - Pyrexia [Recovering/Resolving]
  - Tachycardia [Recovering/Resolving]
